FAERS Safety Report 8611480-X (Version None)
Quarter: 2012Q3

REPORT INFORMATION
  Report Type: 
  Country: None (occurrence: None)
  Receive Date: 20120822
  Receipt Date: 20120816
  Transmission Date: 20120928
  Serious: Yes (Other)
  Sender: FDA-Public Use
  Company Number: US-PFIZER INC-2012201298

PATIENT
  Age: 71 Year
  Sex: Female
  Weight: 58.05 kg

DRUGS (4)
  1. LYRICA [Suspect]
     Indication: POLYNEUROPATHY
     Dosage: 50 MG, 3X/DAY
     Route: 048
     Dates: start: 20120802, end: 20120801
  2. LYRICA [Suspect]
     Dosage: 50 MG, 2X/DAY
     Route: 048
     Dates: start: 20120801
  3. ATENOLOL [Concomitant]
     Indication: HYPERTENSION
     Dosage: UNK
  4. MULTI-VITAMINS [Concomitant]
     Dosage: UNK

REACTIONS (3)
  - HEART RATE ABNORMAL [None]
  - HEART RATE INCREASED [None]
  - EXTRASYSTOLES [None]
